FAERS Safety Report 24297095 (Version 1)
Quarter: 2024Q3

REPORT INFORMATION
  Report Type: Report from Study
  Country: AT (occurrence: AT)
  Receive Date: 20240909
  Receipt Date: 20240909
  Transmission Date: 20241016
  Serious: Yes (Other)
  Sender: UCB
  Company Number: AT-UCBSA-2024045479

PATIENT

DRUGS (2)
  1. LEVETIRACETAM [Suspect]
     Active Substance: LEVETIRACETAM
     Indication: Seizure prophylaxis
     Dosage: 500 MILLIGRAM, 2X/DAY (BID) (ON THE FIRST DAY)
     Route: 048
  2. LEVETIRACETAM [Suspect]
     Active Substance: LEVETIRACETAM
     Indication: Off label use
     Dosage: 1000 MILLIGRAM, 2X/DAY (BID) (THE SECOND DAY)
     Route: 048

REACTIONS (15)
  - Psychotic symptom [Unknown]
  - Subarachnoid haemorrhage [Unknown]
  - Seizure [Unknown]
  - Diverticulitis [Unknown]
  - Somnolence [Unknown]
  - Memory impairment [Unknown]
  - Vertigo [Unknown]
  - Headache [Unknown]
  - Depression [Unknown]
  - Rash [Unknown]
  - Nasopharyngitis [Unknown]
  - Nausea [Unknown]
  - Diarrhoea [Unknown]
  - Eye pain [Unknown]
  - Off label use [Unknown]
